FAERS Safety Report 11540486 (Version 1)
Quarter: 2015Q3

REPORT INFORMATION
  Report Type: Spontaneous
  Country: US (occurrence: US)
  Receive Date: 20150923
  Receipt Date: 20150923
  Transmission Date: 20151125
  Serious: No
  Sender: FDA-Public Use
  Company Number: US-BEH-2015047828

PATIENT
  Age: 68 Year
  Sex: Female
  Weight: 68 kg

DRUGS (31)
  1. EPIPEN [Concomitant]
     Active Substance: EPINEPHRINE
  2. CALCIUM [Concomitant]
     Active Substance: CALCIUM
  3. COENZYME Q [Concomitant]
  4. VENLAFAXINE [Concomitant]
     Active Substance: VENLAFAXINE HYDROCHLORIDE
  5. DIPHENHYDRAMINE. [Concomitant]
     Active Substance: DIPHENHYDRAMINE
  6. ASPIRIN. [Concomitant]
     Active Substance: ASPIRIN
  7. SODIUM CHLORIDE. [Concomitant]
     Active Substance: SODIUM CHLORIDE
  8. VITAMIN D3 [Concomitant]
     Active Substance: CHOLECALCIFEROL
  9. METOPROLOL TARTRATE. [Concomitant]
     Active Substance: METOPROLOL TARTRATE
  10. PRIVIGEN [Suspect]
     Active Substance: HUMAN IMMUNOGLOBULIN G
     Indication: IMMUNODEFICIENCY COMMON VARIABLE
     Route: 042
  11. LIDOCAINE/PRILOCAINE [Concomitant]
  12. NORMAL SALINE [Concomitant]
     Active Substance: SODIUM CHLORIDE
  13. CELLCEPT [Concomitant]
     Active Substance: MYCOPHENOLATE MOFETIL\MYCOPHENOLATE MOFETIL HYDROCHLORIDE
  14. LMX [Concomitant]
     Active Substance: LIDOCAINE
  15. GRANISETRON [Concomitant]
     Active Substance: GRANISETRON
  16. VITAMIN B12 [Concomitant]
     Active Substance: CYANOCOBALAMIN
  17. LORATADINE. [Concomitant]
     Active Substance: LORATADINE
  18. OMEPRAZOLE DR [Concomitant]
     Active Substance: OMEPRAZOLE
  19. REQUIP [Concomitant]
     Active Substance: ROPINIROLE HYDROCHLORIDE
  20. IRON [Concomitant]
     Active Substance: IRON
  21. LEVOTHYROXINE. [Concomitant]
     Active Substance: LEVOTHYROXINE
  22. DIPHENHYDRAMINE. [Concomitant]
     Active Substance: DIPHENHYDRAMINE
  23. EMESTANE [Concomitant]
  24. SYNTHROID [Concomitant]
     Active Substance: LEVOTHYROXINE SODIUM
  25. LIPITOR [Concomitant]
     Active Substance: ATORVASTATIN CALCIUM
  26. OXYGEN. [Concomitant]
     Active Substance: OXYGEN
  27. TEMAZEPAM. [Concomitant]
     Active Substance: TEMAZEPAM
  28. REVATIO [Concomitant]
     Active Substance: SILDENAFIL CITRATE
  29. PRIVIGEN [Suspect]
     Active Substance: HUMAN IMMUNOGLOBULIN G
     Route: 042
  30. ACETAMINOPHEN. [Concomitant]
     Active Substance: ACETAMINOPHEN
  31. DEXTROSE. [Concomitant]
     Active Substance: DEXTROSE

REACTIONS (1)
  - Influenza [Unknown]

NARRATIVE: CASE EVENT DATE: 20150101
